FAERS Safety Report 9290736 (Version 1)
Quarter: 2013Q2

REPORT INFORMATION
  Report Type: Report from Study
  Country: AU (occurrence: AU)
  Receive Date: 20130515
  Receipt Date: 20130515
  Transmission Date: 20140414
  Serious: Yes (Other)
  Sender: FDA-Public Use
  Company Number: PHHY2013AU037079

PATIENT
  Age: 57 Year
  Sex: Male

DRUGS (4)
  1. ACLASTA [Suspect]
     Dosage: 5 MG, ANNUALLY
     Route: 042
     Dates: start: 20100527
  2. ACLASTA [Suspect]
     Dosage: 5 MG, ANNUALLY
     Route: 042
     Dates: start: 20110506
  3. ACLASTA [Suspect]
     Dosage: 5 MG, ANNUALLY
     Route: 042
     Dates: start: 20120424
  4. OSTELIN VITAMIN D + CALCIUM [Concomitant]
     Route: 048

REACTIONS (3)
  - Pelvic mass [Unknown]
  - Abdominal adhesions [Recovered/Resolved]
  - Abdominal discomfort [Unknown]
